FAERS Safety Report 18244325 (Version 2)
Quarter: 2020Q3

REPORT INFORMATION
  Report Type: Spontaneous
  Country: DE (occurrence: DE)
  Receive Date: 20200909
  Receipt Date: 20200919
  Transmission Date: 20201103
  Serious: Yes (Other)
  Sender: FDA-Public Use
  Company Number: DE-AUROBINDO-AUR-APL-2020-046998

PATIENT
  Sex: Female
  Weight: 88 kg

DRUGS (4)
  1. LAMOTRIGINE 200MG [Suspect]
     Active Substance: LAMOTRIGINE
     Indication: EPILEPSY
     Dosage: 2 DOSAGE FORM, ONCE A DAY (1?0?1)
     Route: 065
     Dates: start: 200404
  2. VELAFEE [Suspect]
     Active Substance: DIENOGEST\ETHINYL ESTRADIOL
     Indication: ORAL CONTRACEPTION
     Dosage: UNK
     Route: 048
     Dates: start: 201904
  3. VELAFEE [Suspect]
     Active Substance: DIENOGEST\ETHINYL ESTRADIOL
     Indication: HORMONAL CONTRACEPTION
  4. LAMOTRIGINE 200MG [Suspect]
     Active Substance: LAMOTRIGINE
     Dosage: 1 DOSAGE FORM, ONCE A DAY
     Route: 065
     Dates: start: 200404

REACTIONS (3)
  - Thrombosis [Unknown]
  - Venous thrombosis limb [Unknown]
  - Thrombophlebitis [Unknown]

NARRATIVE: CASE EVENT DATE: 20200803
